FAERS Safety Report 15648091 (Version 1)
Quarter: 2018Q4

REPORT INFORMATION
  Report Type: Spontaneous
  Country: FR (occurrence: FR)
  Receive Date: 20181122
  Receipt Date: 20181122
  Transmission Date: 20190205
  Serious: Yes (Other)
  Sender: FDA-Public Use
  Company Number: FR-PROVELL PHARMACEUTICALS-2059202

PATIENT
  Age: 68 Year
  Sex: Female

DRUGS (1)
  1. EUTHYROX [Suspect]
     Active Substance: LEVOTHYROXINE SODIUM
     Indication: THYROID DISORDER
     Dates: start: 201704

REACTIONS (13)
  - Aggression [Recovering/Resolving]
  - Muscle spasms [Recovering/Resolving]
  - Eye pruritus [Recovering/Resolving]
  - Weight increased [Recovering/Resolving]
  - Visual impairment [Recovering/Resolving]
  - Pain in extremity [Not Recovered/Not Resolved]
  - Periphlebitis [Not Recovered/Not Resolved]
  - Headache [Recovering/Resolving]
  - Multiple-drug resistance [Recovering/Resolving]
  - Pruritus [Recovering/Resolving]
  - Deafness [Recovering/Resolving]
  - Tinnitus [Recovering/Resolving]
  - Hypersensitivity [Recovering/Resolving]

NARRATIVE: CASE EVENT DATE: 2017
